FAERS Safety Report 9752502 (Version 1)
Quarter: 2013Q4

REPORT INFORMATION
  Report Type: Spontaneous
  Country: US (occurrence: None)
  Receive Date: 20131211
  Receipt Date: 20131211
  Transmission Date: 20140711
  Serious: Yes (Other)
  Sender: FDA-Public Use
  Company Number: None

PATIENT
  Age: 60 Year
  Sex: Male
  Weight: 72.7 kg

DRUGS (1)
  1. LAMICTAL [Suspect]
     Indication: CONVULSION
     Dosage: 200 MG  TWICE A DAY  PILLS, SWALLOWED
     Route: 048

REACTIONS (3)
  - Tremor [None]
  - Coordination abnormal [None]
  - Insomnia [None]
